FAERS Safety Report 18261480 (Version 1)
Quarter: 2020Q3

REPORT INFORMATION
  Report Type: Spontaneous
  Country: BE (occurrence: BE)
  Receive Date: 20200914
  Receipt Date: 20200914
  Transmission Date: 20201103
  Serious: Yes (Other)
  Sender: FDA-Public Use
  Company Number: BE-PFIZER INC-2020351281

PATIENT
  Age: 63 Year
  Sex: Female

DRUGS (6)
  1. PREDNISONE. [Suspect]
     Active Substance: PREDNISONE
     Indication: MALIGNANT MELANOMA
     Dosage: UNK, CYCLIC
  2. RITUXIMAB. [Suspect]
     Active Substance: RITUXIMAB
     Indication: MALIGNANT MELANOMA
     Dosage: UNK, CYCLIC
  3. DOXORUBICIN HCL [Suspect]
     Active Substance: DOXORUBICIN HYDROCHLORIDE
     Indication: MALIGNANT MELANOMA
     Dosage: UNK,CYCLIC
  4. MITOXANTRONE [Suspect]
     Active Substance: MITOXANTRONE HYDROCHLORIDE
     Indication: MALIGNANT MELANOMA
     Dosage: UNK, CYCLIC
  5. VINCRISTINE SULFATE. [Suspect]
     Active Substance: VINCRISTINE SULFATE
     Indication: MALIGNANT MELANOMA
     Dosage: UNK, CYCLIC
  6. CYCLOPHOSPHAMIDE. [Suspect]
     Active Substance: CYCLOPHOSPHAMIDE
     Indication: MALIGNANT MELANOMA
     Dosage: UNK, CYCLIC

REACTIONS (3)
  - Ejection fraction decreased [Unknown]
  - Neoplasm progression [Unknown]
  - Acute pulmonary oedema [Unknown]
